FAERS Safety Report 7828171-5 (Version None)
Quarter: 2011Q4

REPORT INFORMATION
  Report Type: 
  Country: None (occurrence: None)
  Receive Date: 20111018
  Receipt Date: 20111006
  Transmission Date: 20120403
  Serious: Yes (Death)
  Sender: FDA-Public Use
  Company Number: 2011GW000538

PATIENT
  Age: 66 Year
  Sex: Male

DRUGS (2)
  1. FLECAINIDE ACETATE [Suspect]
     Indication: ATRIAL FIBRILLATION
     Dosage: 300 MG;QD;PO
     Route: 048
  2. BETA BLOCKING AGENTS [Concomitant]

REACTIONS (1)
  - SUDDEN CARDIAC DEATH [None]
